FAERS Safety Report 8139834-9 (Version None)
Quarter: 2012Q1

REPORT INFORMATION
  Report Type: 
  Country: None (occurrence: None)
  Receive Date: 20120215
  Receipt Date: 20120207
  Transmission Date: 20120608
  Serious: Yes (Other)
  Sender: FDA-Public Use
  Company Number: ZA-B.I. PHARMACEUTICALS,INC./RIDGEFIELD-2012-AP-00096ZA

PATIENT
  Sex: Female
  Weight: 58 kg

DRUGS (3)
  1. PRADAXA [Suspect]
     Indication: HIP ARTHROPLASTY
     Dosage: 220 MG
     Route: 048
     Dates: start: 20120112, end: 20120114
  2. CELEBREX [Concomitant]
     Dates: start: 20120112
  3. STOPAYNE [Concomitant]
     Dates: start: 20120112

REACTIONS (2)
  - CHEST PAIN [None]
  - DYSPNOEA [None]
